FAERS Safety Report 23041021 (Version 3)
Quarter: 2024Q2

REPORT INFORMATION
  Report Type: Spontaneous
  Country: US (occurrence: US)
  Receive Date: 20231006
  Receipt Date: 20240614
  Transmission Date: 20240715
  Serious: No
  Sender: FDA-Public Use
  Company Number: US-009507513-2309USA010257

PATIENT
  Sex: Female
  Weight: 105.22 kg

DRUGS (18)
  1. KEYTRUDA [Suspect]
     Active Substance: PEMBROLIZUMAB
     Indication: Endometrial neoplasm
     Dosage: 100 MG/4 ML VIAL
  2. KEYTRUDA [Suspect]
     Active Substance: PEMBROLIZUMAB
     Dosage: 100 MG/4 ML VIAL
     Dates: start: 20230919, end: 20230919
  3. LENVATINIB MESYLATE [Suspect]
     Active Substance: LENVATINIB MESYLATE
     Indication: Endometrial neoplasm
     Dosage: UNK
     Dates: start: 202307
  4. LENVATINIB MESYLATE [Suspect]
     Active Substance: LENVATINIB MESYLATE
     Dosage: 20 MILLIGRAM, DAILY (QD)
     Route: 048
     Dates: start: 20230829, end: 2023
  5. LENVATINIB MESYLATE [Suspect]
     Active Substance: LENVATINIB MESYLATE
     Dosage: 10 MILLIGRAM, DAILY (QD)
     Route: 048
     Dates: start: 20230919
  6. OLMESARTAN MEDOXOMIL [Concomitant]
     Active Substance: OLMESARTAN MEDOXOMIL
     Dosage: 5 MG
     Route: 048
  7. LEVOCETIRIZINE DIHYDROCHLORIDE [Concomitant]
     Active Substance: LEVOCETIRIZINE DIHYDROCHLORIDE
  8. AMLODIPINE [Concomitant]
     Active Substance: AMLODIPINE BESYLATE
  9. BIOTENE PBF [Concomitant]
     Active Substance: SODIUM FLUORIDE
  10. DIPHENHYDRAMINE [Concomitant]
     Active Substance: DIPHENHYDRAMINE
  11. HYDROCODONE [Concomitant]
     Active Substance: HYDROCODONE
  12. LACTASE [Concomitant]
     Active Substance: LACTASE
  13. LORAZEPAM [Concomitant]
     Active Substance: LORAZEPAM
  14. ONDANSETRON HYDROCHLORIDE [Concomitant]
     Active Substance: ONDANSETRON HYDROCHLORIDE
  15. PEPCID AC [Concomitant]
     Active Substance: FAMOTIDINE
  16. PREPARATION H [HYDROCORTISONE] [Concomitant]
  17. PROCHLORPERAZINE [Concomitant]
     Active Substance: PROCHLORPERAZINE
  18. VITAMIN D3 [Concomitant]
     Active Substance: CHOLECALCIFEROL

REACTIONS (5)
  - Fatigue [Unknown]
  - Dyspnoea [Unknown]
  - Eye pain [Unknown]
  - Pain in jaw [Unknown]
  - Incorrect dose administered [Unknown]

NARRATIVE: CASE EVENT DATE: 20230101
